FAERS Safety Report 25165915 (Version 1)
Quarter: 2025Q2

REPORT INFORMATION
  Report Type: Spontaneous
  Country: SG (occurrence: SG)
  Receive Date: 20250407
  Receipt Date: 20250407
  Transmission Date: 20250717
  Serious: Yes (Other)
  Sender: ROCHE
  Company Number: SG-ROCHE-10000249502

PATIENT
  Age: 33 Year
  Sex: Female

DRUGS (1)
  1. RITUXIMAB [Suspect]
     Active Substance: RITUXIMAB
     Indication: Product used for unknown indication
     Route: 065

REACTIONS (4)
  - Flushing [Unknown]
  - Myalgia [Unknown]
  - Periorbital oedema [Unknown]
  - Rash [Unknown]

NARRATIVE: CASE EVENT DATE: 20250201
